FAERS Safety Report 7963928-1 (Version None)
Quarter: 2011Q4

REPORT INFORMATION
  Report Type: 
  Country: None (occurrence: None)
  Receive Date: 20111208
  Receipt Date: 20111202
  Transmission Date: 20120403
  Serious: Yes (Hospitalization, Other)
  Sender: FDA-Public Use
  Company Number: US-JNJFOC-20111201075

PATIENT
  Sex: Male

DRUGS (2)
  1. LEVAQUIN [Suspect]
     Route: 048
     Dates: start: 20111026, end: 20111104
  2. LEVAQUIN [Suspect]
     Indication: PNEUMONIA
     Dosage: FOR 10 DAYS
     Route: 048
     Dates: start: 20111001, end: 20111001

REACTIONS (1)
  - RESPIRATORY DISORDER [None]
